FAERS Safety Report 20616378 (Version 1)
Quarter: 2022Q1

REPORT INFORMATION
  Report Type: Report from Study
  Country: IE (occurrence: IE)
  Receive Date: 20220321
  Receipt Date: 20220321
  Transmission Date: 20220424
  Serious: Yes (Hospitalization, Other)
  Sender: FDA-Public Use
  Company Number: IE-SA-2018SA210927

PATIENT
  Sex: Female

DRUGS (14)
  1. BACLOFEN [Suspect]
     Active Substance: BACLOFEN
     Indication: Muscle spasms
     Dosage: UNK
     Dates: start: 202201, end: 20220131
  2. ALEMTUZUMAB [Suspect]
     Active Substance: ALEMTUZUMAB
     Indication: Relapsing-remitting multiple sclerosis
     Dosage: UNK
     Route: 041
     Dates: start: 20180629
  3. COTRIMOXAZOLE [Concomitant]
     Active Substance: SULFAMETHOXAZOLE\TRIMETHOPRIM
     Dosage: 960 MG, QD
     Route: 050
  4. MYCOSTATIN [Concomitant]
     Active Substance: NYSTATIN
     Dosage: 1 ML, Q6H
  5. MYCOSTATIN [Concomitant]
     Active Substance: NYSTATIN
     Dosage: 1 ML , QD
     Route: 050
  6. FUROSEMIDE [Concomitant]
     Active Substance: FUROSEMIDE
     Dosage: 40 MG, BID
     Route: 065
  7. FOLIC ACID [Concomitant]
     Active Substance: FOLIC ACID
     Dosage: 5 MG, QD
     Route: 050
  8. BISOPROLOL [Concomitant]
     Active Substance: BISOPROLOL
     Dosage: 1.25 MG, QD
     Route: 050
  9. EVENING PRIMROSE OIL\HERBALS\TOCOPHEROL [Concomitant]
     Active Substance: EVENING PRIMROSE OIL\HERBALS\TOCOPHEROL
     Dosage: 1 IU, QD
     Route: 050
  10. CHOLECALCIFEROL [Concomitant]
     Active Substance: CHOLECALCIFEROL
     Dosage: 800 IU, BID
     Route: 050
  11. LACTULOSE [Concomitant]
     Active Substance: LACTULOSE
     Dosage: 10 ML, QD
     Route: 050
  12. VALACYCLOVIR [Concomitant]
     Active Substance: VALACYCLOVIR HYDROCHLORIDE
     Dosage: 500 MG, QD
     Route: 050
  13. OMEPRAZOLE [Concomitant]
     Active Substance: OMEPRAZOLE
     Dosage: 20 MG, QD
     Route: 050
  14. TROSPIUM CHLORIDE [Concomitant]
     Active Substance: TROSPIUM CHLORIDE
     Dosage: 20 MG, BID
     Route: 050

REACTIONS (21)
  - Sepsis [Not Recovered/Not Resolved]
  - Renal failure [Not Recovered/Not Resolved]
  - Gallbladder disorder [Unknown]
  - Liver function test abnormal [Unknown]
  - Rash pruritic [Not Recovered/Not Resolved]
  - Multiple sclerosis relapse [Not Recovered/Not Resolved]
  - Urinary casts present [Unknown]
  - Urinary incontinence [Recovering/Resolving]
  - Goitre [Not Recovered/Not Resolved]
  - Peripheral swelling [Not Recovered/Not Resolved]
  - Abdominal pain [Recovered/Resolved]
  - Pain [Not Recovered/Not Resolved]
  - Chest pain [Recovered/Resolved]
  - Eye pain [Not Recovered/Not Resolved]
  - Vomiting [Recovered/Resolved]
  - Arthralgia [Not Recovered/Not Resolved]
  - Pain in extremity [Not Recovered/Not Resolved]
  - Hypertonic bladder [Recovering/Resolving]
  - Dysphagia [Not Recovered/Not Resolved]
  - Myalgia [Not Recovered/Not Resolved]
  - Muscle spasms [Unknown]

NARRATIVE: CASE EVENT DATE: 20220101
